FAERS Safety Report 16645419 (Version 1)
Quarter: 2019Q3

REPORT INFORMATION
  Report Type: Spontaneous
  Country: US (occurrence: US)
  Receive Date: 20190729
  Receipt Date: 20190729
  Transmission Date: 20191004
  Serious: No
  Sender: FDA-Public Use
  Company Number: US-GLAXOSMITHKLINE-US2019133807

PATIENT
  Age: 89 Year
  Sex: Female

DRUGS (1)
  1. ANORO ELLIPTA [Suspect]
     Active Substance: UMECLIDINIUM BROMIDE\VILANTEROL TRIFENATATE
     Indication: PRODUCT USED FOR UNKNOWN INDICATION
     Dosage: 2 PUFF(S), QD
     Route: 055
     Dates: start: 20190716, end: 20190719

REACTIONS (7)
  - Skin burning sensation [Not Recovered/Not Resolved]
  - Peripheral swelling [Not Recovered/Not Resolved]
  - Prescribed overdose [Unknown]
  - Pruritus [Not Recovered/Not Resolved]
  - Product dose omission [Unknown]
  - Cough [Recovered/Resolved]
  - Pulmonary pain [Recovered/Resolved]

NARRATIVE: CASE EVENT DATE: 20190716
